FAERS Safety Report 7302585-4 (Version None)
Quarter: 2011Q1

REPORT INFORMATION
  Report Type: 
  Country: None (occurrence: None)
  Receive Date: 20110218
  Receipt Date: 20110216
  Transmission Date: 20110831
  Serious: Yes (Death, Hospitalization)
  Sender: FDA-Public Use
  Company Number: GB-MEDIMMUNE-MEDI-0012279

PATIENT
  Sex: Male
  Weight: 7.2 kg

DRUGS (3)
  1. SYNAGIS [Suspect]
     Dates: start: 20101105, end: 20101105
  2. SYNAGIS [Suspect]
     Dates: start: 20101008, end: 20101008
  3. SYNAGIS [Suspect]
     Dates: start: 20101203, end: 20101203

REACTIONS (2)
  - CHARGE SYNDROME [None]
  - PNEUMONIA [None]
